FAERS Safety Report 10242070 (Version 2)
Quarter: 2014Q3

REPORT INFORMATION
  Report Type: Spontaneous
  Country: US (occurrence: US)
  Receive Date: 20140617
  Receipt Date: 20140909
  Transmission Date: 20150326
  Serious: Yes (Hospitalization)
  Sender: FDA-Public Use
  Company Number: US-BAYER-2014-090454

PATIENT
  Age: 27 Year
  Sex: Female
  Weight: 52.15 kg

DRUGS (1)
  1. MIRENA [Suspect]
     Active Substance: LEVONORGESTREL
     Indication: CONTRACEPTION
     Dosage: 20 MCG/24HR, CONT
     Route: 015
     Dates: start: 20090722, end: 20120623

REACTIONS (10)
  - Dyspareunia [None]
  - Injury [None]
  - Emotional distress [None]
  - Abdominal pain [None]
  - Uterine perforation [None]
  - Device issue [None]
  - Anxiety [None]
  - Depression [None]
  - Fear [None]
  - Device failure [None]

NARRATIVE: CASE EVENT DATE: 201112
